FAERS Safety Report 24069953 (Version 1)
Quarter: 2024Q3

REPORT INFORMATION
  Report Type: Report from Study
  Country: CN (occurrence: CN)
  Receive Date: 20240710
  Receipt Date: 20240710
  Transmission Date: 20241016
  Serious: No
  Sender: ROCHE
  Company Number: CN-ROCHE-3328700

PATIENT
  Age: 55 Year
  Sex: Female

DRUGS (1)
  1. ALECENSA [Suspect]
     Active Substance: ALECTINIB HYDROCHLORIDE
     Indication: Lung neoplasm malignant
     Dosage: 150 MG * 224 CAPSULES
     Route: 048
     Dates: start: 20210830

REACTIONS (8)
  - Rash [Recovering/Resolving]
  - Asthenia [Recovering/Resolving]
  - Blood bilirubin increased [Recovering/Resolving]
  - Myalgia [Not Recovered/Not Resolved]
  - Constipation [Recovering/Resolving]
  - Dizziness [Recovering/Resolving]
  - Abdominal discomfort [Not Recovered/Not Resolved]
  - Blood bilirubin increased [Not Recovered/Not Resolved]

NARRATIVE: CASE EVENT DATE: 20221101
